FAERS Safety Report 6174681-9 (Version None)
Quarter: 2009Q2

REPORT INFORMATION
  Report Type: 
  Country: None (occurrence: None)
  Receive Date: 20090430
  Receipt Date: 20090422
  Transmission Date: 20091009
  Serious: Yes (Hospitalization, Other)
  Sender: FDA-Public Use
  Company Number: US-AMGEN-KDL338116

PATIENT
  Sex: Female

DRUGS (12)
  1. EPOGEN [Suspect]
     Indication: DIALYSIS
     Route: 042
     Dates: start: 20080910
  2. ZEMPLAR [Concomitant]
  3. KAYEXALATE [Concomitant]
     Dates: start: 20050615
  4. NEPHROCAPS [Concomitant]
     Route: 048
     Dates: start: 20050120
  5. MINOXIDIL [Concomitant]
     Route: 048
     Dates: start: 20090216
  6. LIPITOR [Concomitant]
     Dates: start: 20060927
  7. FOLIC ACID [Concomitant]
     Route: 048
     Dates: start: 20050120
  8. CLONIDINE [Concomitant]
     Dates: start: 20050120
  9. TOPROL-XL [Concomitant]
     Route: 048
     Dates: start: 20090216
  10. RENAGEL [Concomitant]
     Route: 048
     Dates: start: 20071116
  11. SENSIPAR [Concomitant]
     Indication: HYPERPARATHYROIDISM SECONDARY
     Dates: start: 20070208, end: 20081228
  12. ACETAMINOPHEN [Concomitant]
     Route: 048
     Dates: start: 20020830

REACTIONS (8)
  - ABDOMINAL PAIN [None]
  - BLOOD PRESSURE DECREASED [None]
  - DYSPNOEA [None]
  - HYPERTENSION [None]
  - KIDNEY INFECTION [None]
  - NAUSEA [None]
  - THERAPEUTIC RESPONSE DECREASED [None]
  - VOMITING [None]
